FAERS Safety Report 8537458-2 (Version None)
Quarter: 2012Q3

REPORT INFORMATION
  Report Type: 
  Country: None (occurrence: None)
  Receive Date: 20120725
  Receipt Date: 20120720
  Transmission Date: 20120928
  Serious: Yes (Hospitalization, Other)
  Sender: FDA-Public Use
  Company Number: JP-B.I. PHARMACEUTICALS,INC./RIDGEFIELD-2012-BP-16110NB

PATIENT
  Age: 9 Decade
  Sex: Female

DRUGS (1)
  1. PRADAXA [Suspect]

REACTIONS (4)
  - ACUTE PRERENAL FAILURE [None]
  - SHOCK HAEMORRHAGIC [None]
  - ALTERED STATE OF CONSCIOUSNESS [None]
  - DEHYDRATION [None]
